FAERS Safety Report 10227391 (Version 1)
Quarter: 2014Q2

REPORT INFORMATION
  Report Type: Spontaneous
  Country: US (occurrence: None)
  Receive Date: 20140606
  Receipt Date: 20140606
  Transmission Date: 20141212
  Serious: Yes (Life-Threatening, Hospitalization)
  Sender: FDA-Public Use
  Company Number: 2014/042

PATIENT
  Age: 17 Year
  Sex: Female

DRUGS (2)
  1. LEVETIRACETAM [Suspect]
     Indication: CONVULSION
  2. LEVETIRACETAM [Suspect]
     Indication: FATIGUE

REACTIONS (5)
  - Hydronephrosis [None]
  - Tubulointerstitial nephritis [None]
  - Nephritis allergic [None]
  - Hydronephrosis [None]
  - Eosinophilia [None]
